FAERS Safety Report 8816100 (Version 2)
Quarter: 2012Q4

REPORT INFORMATION
  Report Type: 
  Country: ZA (occurrence: ZA)
  Receive Date: 20120928
  Receipt Date: 20121029
  Transmission Date: 20130627
  Serious: Yes (Other)
  Sender: FDA-Public Use
  Company Number: ZA-PFIZER INC-2012239706

PATIENT
  Sex: Female

DRUGS (4)
  1. GEODON [Suspect]
     Indication: DEPRESSION
     Dosage: 1 capsule in the evening
     Route: 048
     Dates: end: 2012
  2. LAMICTIN [Concomitant]
     Dosage: UNK
  3. ZOLOFT [Concomitant]
     Dosage: UNK
  4. TOPAMAX [Concomitant]
     Dosage: UNK

REACTIONS (12)
  - Dyspnoea [Recovering/Resolving]
  - Fatigue [Recovering/Resolving]
  - Palpitations [Recovering/Resolving]
  - Restlessness [Recovering/Resolving]
  - Vision blurred [Recovering/Resolving]
  - Vertigo [Recovering/Resolving]
  - Tinnitus [Recovering/Resolving]
  - Tongue disorder [Recovering/Resolving]
  - Oropharyngeal pain [Recovering/Resolving]
  - Rhinitis [Recovering/Resolving]
  - Aphasia [Recovering/Resolving]
  - Muscle disorder [Recovering/Resolving]
